FAERS Safety Report 15549211 (Version 1)
Quarter: 2018Q4

REPORT INFORMATION
  Report Type: Spontaneous
  Country: JP (occurrence: JP)
  Receive Date: 20181025
  Receipt Date: 20181025
  Transmission Date: 20190205
  Serious: Yes (Other)
  Sender: FDA-Public Use
  Company Number: JP-AMGEN-JPNSP2016107541

PATIENT
  Age: 72 Year
  Sex: Male

DRUGS (7)
  1. G-LASTA [Suspect]
     Active Substance: PEGFILGRASTIM
     Indication: FEBRILE NEUTROPENIA
     Dosage: UNK
     Route: 058
     Dates: start: 20160802
  2. RAMUCIRUMAB RECOMBINANT [Concomitant]
     Active Substance: RAMUCIRUMAB
     Dosage: UNK
     Route: 041
     Dates: start: 20160726, end: 20160726
  3. PACLITAXEL. [Concomitant]
     Active Substance: PACLITAXEL
     Indication: GASTRIC CANCER
     Dosage: UNK
     Route: 065
     Dates: start: 20160712, end: 20160712
  4. PACLITAXEL. [Concomitant]
     Active Substance: PACLITAXEL
     Dosage: UNK
     Route: 065
     Dates: start: 20160726, end: 20160726
  5. RAMUCIRUMAB RECOMBINANT [Concomitant]
     Active Substance: RAMUCIRUMAB
     Dosage: UNK
     Route: 041
     Dates: start: 20160816, end: 20160816
  6. PACLITAXEL. [Concomitant]
     Active Substance: PACLITAXEL
     Dosage: UNK
     Route: 065
     Dates: start: 20160816, end: 20160816
  7. RAMUCIRUMAB RECOMBINANT [Concomitant]
     Active Substance: RAMUCIRUMAB
     Indication: GASTRIC CANCER
     Dosage: UNK
     Route: 041
     Dates: start: 20160712, end: 20160712

REACTIONS (3)
  - Off label use [Unknown]
  - Chemotherapy [Unknown]
  - Therapeutic procedure [Unknown]
